FAERS Safety Report 9326209 (Version 1)
Quarter: 2013Q2

REPORT INFORMATION
  Report Type: Spontaneous
  Country: US (occurrence: US)
  Receive Date: 20130604
  Receipt Date: 20130604
  Transmission Date: 20140414
  Serious: Yes (Other)
  Sender: FDA-Public Use
  Company Number: US-ROXANE LABORATORIES, INC.-2013-RO-00864RO

PATIENT
  Age: 2 Month
  Sex: 0

DRUGS (2)
  1. PROPRANOLOL [Suspect]
     Indication: PHACES SYNDROME
     Route: 048
  2. CORTICOSTEROIDS [Suspect]
     Indication: PHACES SYNDROME

REACTIONS (1)
  - Sleep terror [Unknown]
